FAERS Safety Report 24712030 (Version 1)
Quarter: 2024Q4

REPORT INFORMATION
  Report Type: Spontaneous
  Country: FR (occurrence: FR)
  Receive Date: 20241209
  Receipt Date: 20241209
  Transmission Date: 20250115
  Serious: Yes (Life-Threatening, Hospitalization, Other)
  Sender: HIKMA
  Company Number: None

PATIENT
  Age: 55 Year
  Sex: Male
  Weight: 73 kg

DRUGS (2)
  1. IRINOTECAN [Suspect]
     Active Substance: IRINOTECAN
     Indication: Malignant neoplasm of ampulla of Vater
     Dosage: 3 DOSAGE FORM, SINGLE
     Route: 042
     Dates: start: 20240919, end: 20241017
  2. OXALIPLATIN [Suspect]
     Active Substance: OXALIPLATIN
     Indication: Malignant neoplasm of ampulla of Vater
     Dosage: 3 DOSAGE FORM, SINGLE
     Route: 042
     Dates: start: 20240919, end: 20241017

REACTIONS (4)
  - Acute kidney injury [Recovering/Resolving]
  - Renal tubular necrosis [Recovering/Resolving]
  - Anaemia [Recovering/Resolving]
  - Immune thrombocytopenia [Recovered/Resolved]

NARRATIVE: CASE EVENT DATE: 20241018
